FAERS Safety Report 18390654 (Version 4)
Quarter: 2020Q4

REPORT INFORMATION
  Report Type: Spontaneous
  Country: CA (occurrence: CA)
  Receive Date: 20201016
  Receipt Date: 20201231
  Transmission Date: 20210114
  Serious: Yes (Other)
  Sender: FDA-Public Use
  Company Number: CA-CELLTRION INC.-2020CA023886

PATIENT

DRUGS (12)
  1. INFLECTRA [Suspect]
     Active Substance: INFLIXIMAB-DYYB
     Dosage: 5 MG/KG (10 MG/KG 0, 1, 6 WEEKS THEN 5 MG/KG EVERY 8WEEKS)
     Route: 042
     Dates: start: 20201007
  2. INFLECTRA [Suspect]
     Active Substance: INFLIXIMAB-DYYB
     Dosage: 200 MG EVERY 8 WEEKS
     Route: 042
     Dates: start: 20201118
  3. INFLECTRA [Suspect]
     Active Substance: INFLIXIMAB-DYYB
     Dosage: 10 MG/KG 0, 1, 6 WEEKS THEN 5 MG/KG EVERY 8 WEEKS
     Route: 042
     Dates: start: 20200621, end: 20200728
  4. INFLECTRA [Suspect]
     Active Substance: INFLIXIMAB-DYYB
     Indication: COLITIS ULCERATIVE
     Dosage: 10 MG/KG, EVERY 6 WEEKS
     Route: 042
     Dates: start: 20200621
  5. INFLECTRA [Suspect]
     Active Substance: INFLIXIMAB-DYYB
     Dosage: 10 MG/KG, EVERY 6 WEEKS
     Route: 042
     Dates: start: 20200728
  6. INFLECTRA [Suspect]
     Active Substance: INFLIXIMAB-DYYB
     Dosage: 5 MG/KG (10 MG/KG 0, 1, 6 WEEKS THEN 5 MG/KG EVERY 8WEEKS)
     Route: 042
     Dates: start: 20200923
  7. MEZAVANT [Concomitant]
     Active Substance: MESALAMINE
     Dosage: 4.8 G, 1X/DAY
     Route: 065
  8. INFLECTRA [Suspect]
     Active Substance: INFLIXIMAB-DYYB
     Dosage: 10 MG/KG, EVERY 6 WEEKS
     Route: 042
     Dates: start: 20200728
  9. CORTISONE [Concomitant]
     Active Substance: CORTISONE
     Dosage: UNK
     Route: 065
  10. INFLECTRA [Suspect]
     Active Substance: INFLIXIMAB-DYYB
     Dosage: 5 MG/KG (10 MG/KG 0, 1, 6 WEEKS THEN 5 MG/KG EVERY 8WEEKS)
     Route: 042
     Dates: start: 20201118
  11. INFLECTRA [Suspect]
     Active Substance: INFLIXIMAB-DYYB
     Dosage: 5 MG/KG RESCUE DOSE
     Route: 042
     Dates: start: 20200923, end: 20201007
  12. INFLECTRA [Suspect]
     Active Substance: INFLIXIMAB-DYYB
     Dosage: 10 MG/KG, 6 DAYS AFTER THE PREVIOUS INFUSION
     Route: 042
     Dates: start: 20200627

REACTIONS (8)
  - Alopecia [Unknown]
  - Blood pressure fluctuation [Unknown]
  - Off label use [Unknown]
  - Rash [Unknown]
  - Rash macular [Unknown]
  - Condition aggravated [Recovering/Resolving]
  - Intentional product use issue [Unknown]
  - Heart rate decreased [Unknown]

NARRATIVE: CASE EVENT DATE: 20200621
